FAERS Safety Report 9371986 (Version 1)
Quarter: 2013Q2

REPORT INFORMATION
  Report Type: Report from Study
  Country: US (occurrence: US)
  Receive Date: 20130627
  Receipt Date: 20130627
  Transmission Date: 20140414
  Serious: Yes (Death, Hospitalization)
  Sender: FDA-Public Use
  Company Number: US-MYLANLABS-2012S1011711

PATIENT
  Age: 85 Year
  Sex: Male

DRUGS (3)
  1. CLOZAPINE TABLETS [Suspect]
     Indication: DEPRESSION
     Route: 048
     Dates: start: 20120309, end: 201204
  2. RISPERDAL [Concomitant]
  3. PROZAC [Concomitant]

REACTIONS (2)
  - Pneumonia [Fatal]
  - Failure to thrive [Fatal]
